FAERS Safety Report 8320334-8 (Version None)
Quarter: 2012Q2

REPORT INFORMATION
  Report Type: 
  Country: None (occurrence: None)
  Receive Date: 20120430
  Receipt Date: 20120425
  Transmission Date: 20120825
  Serious: Yes (Other)
  Sender: FDA-Public Use
  Company Number: US-PFIZER INC-2012102890

PATIENT
  Sex: Female
  Weight: 68.027 kg

DRUGS (3)
  1. SYNTHROID [Concomitant]
     Indication: HYPOTHYROIDISM
     Dosage: UNK
  2. AROMASIN [Suspect]
     Indication: BREAST CANCER STAGE IV
     Dosage: 25 MG, 1X/DAY
     Route: 048
     Dates: start: 20120201
  3. ACETYLSALICYLIC ACID [Concomitant]
     Dosage: UNK

REACTIONS (1)
  - HYPERTENSION [None]
